FAERS Safety Report 5520352-9 (Version None)
Quarter: 2007Q4

REPORT INFORMATION
  Report Type: 
  Country: None (occurrence: None)
  Receive Date: 20071116
  Receipt Date: 20071116
  Transmission Date: 20080405
  Serious: Yes (Other)
  Sender: FDA-Public Use
  Company Number: None

PATIENT
  Sex: Female
  Weight: 53.0709 kg

DRUGS (4)
  1. ACIPHEX [Suspect]
     Dosage: 20 MG 1 QD PO
     Route: 048
  2. PROTONIX [Suspect]
  3. NEXIUM [Suspect]
  4. PRILOSEC OTC [Suspect]

REACTIONS (2)
  - NEURALGIA [None]
  - PARAESTHESIA [None]
